FAERS Safety Report 16844975 (Version 1)
Quarter: 2019Q4

REPORT INFORMATION
  Report Type: Spontaneous
  Country: US (occurrence: US)
  Receive Date: 20190924
  Receipt Date: 20190924
  Transmission Date: 20200122
  Serious: Yes (Hospitalization)
  Sender: FDA-Public Use
  Company Number: None

PATIENT
  Sex: Female

DRUGS (7)
  1. BOTOX [Suspect]
     Active Substance: ONABOTULINUMTOXINA
     Indication: MIGRAINE
     Dosage: ?          OTHER FREQUENCY:MONTHLY;?
     Route: 030
     Dates: start: 20181228
  2. ENBREL [Suspect]
     Active Substance: ETANERCEPT
     Indication: PRODUCT USED FOR UNKNOWN INDICATION
     Dosage: ?          OTHER FREQUENCY:EVERY 7 DAYS;?
     Route: 058
  3. ESTAZOLAM. [Concomitant]
     Active Substance: ESTAZOLAM
  4. MELOXICAM. [Concomitant]
     Active Substance: MELOXICAM
  5. XANAX [Concomitant]
     Active Substance: ALPRAZOLAM
  6. PREDNISONE. [Concomitant]
     Active Substance: PREDNISONE
  7. LYRICA [Concomitant]
     Active Substance: PREGABALIN

REACTIONS (4)
  - Vertigo [None]
  - Intervertebral disc protrusion [None]
  - Musculoskeletal discomfort [None]
  - Migraine [None]
